FAERS Safety Report 4869530-2 (Version None)
Quarter: 2005Q4

REPORT INFORMATION
  Report Type: 
  Country: None (occurrence: None)
  Receive Date: 20051227
  Receipt Date: 20051214
  Transmission Date: 20060501
  Serious: Yes (Hospitalization, Congenital Anomaly)
  Sender: FDA-Public Use
  Company Number: 2005-12-0863

PATIENT
  Age: 1 Day
  Sex: Male

DRUGS (2)
  1. CELESTODERM [Suspect]
     Route: 064
  2. GARAMYCIN [Suspect]
     Route: 064

REACTIONS (4)
  - CAESAREAN SECTION [None]
  - CONGENITAL ANOMALY [None]
  - DRUG EXPOSURE DURING PREGNANCY [None]
  - NEUROFIBROMA [None]
